FAERS Safety Report 7240773-6 (Version None)
Quarter: 2011Q1

REPORT INFORMATION
  Report Type: 
  Country: None (occurrence: None)
  Receive Date: 20110120
  Receipt Date: 20110120
  Transmission Date: 20110831
  Serious: No
  Sender: FDA-Public Use
  Company Number: None

PATIENT
  Sex: Female
  Weight: 62.5964 kg

DRUGS (1)
  1. HYDROXYCHLOROQUINE  (698/200WATSON) 200 MG [Suspect]
     Indication: RHEUMATOID ARTHRITIS
     Dosage: 200 MG 1 DAILY
     Dates: start: 20100101, end: 20100801

REACTIONS (11)
  - EAR INFECTION [None]
  - VERTIGO [None]
  - PYREXIA [None]
  - VOMITING [None]
  - HEADACHE [None]
  - HYPERTENSION [None]
  - TINNITUS [None]
  - HYPERHIDROSIS [None]
  - INFLUENZA LIKE ILLNESS [None]
  - PAROTITIS [None]
  - WEIGHT DECREASED [None]
